FAERS Safety Report 7849400-8 (Version None)
Quarter: 2011Q4

REPORT INFORMATION
  Report Type: 
  Country: None (occurrence: None)
  Receive Date: 20111024
  Receipt Date: 20111006
  Transmission Date: 20120403
  Serious: Yes (Death, Other)
  Sender: FDA-Public Use
  Company Number: JPI-P-015733

PATIENT
  Age: 27 Year
  Sex: Female
  Weight: 58.514 kg

DRUGS (12)
  1. CARISOPRODOL [Suspect]
     Indication: PRODUCT USED FOR UNKNOWN INDICATION
  2. MEPROBAMATE [Suspect]
     Indication: PRODUCT USED FOR UNKNOWN INDICATION
  3. BENZODIAZEPINES (UNKNOWN) [Suspect]
     Indication: PRODUCT USED FOR UNKNOWN INDICATION
  4. XYREM [Suspect]
     Indication: INSOMNIA
     Dosage: 5 GM (2.5 GM, 2 IN 1 D), ORAL; 13.5 GM (6.75 GM, 2 IN 1 D), ORAL
     Route: 048
     Dates: start: 20110510, end: 20110701
  5. XYREM [Suspect]
     Indication: INSOMNIA
     Dosage: 5 GM (2.5 GM, 2 IN 1 D), ORAL; 13.5 GM (6.75 GM, 2 IN 1 D), ORAL
     Route: 048
     Dates: start: 20051110
  6. NICOTINE [Suspect]
     Indication: PRODUCT USED FOR UNKNOWN INDICATION
  7. IBUPROFEN [Suspect]
     Indication: PRODUCT USED FOR UNKNOWN INDICATION
  8. CHLORDIAZEPOXIDE [Suspect]
     Indication: PRODUCT USED FOR UNKNOWN INDICATION
  9. NORDIAZEPAM (UNKNOWN) [Suspect]
     Indication: PRODUCT USED FOR UNKNOWN INDICATION
  10. OPIATES (UNKNOWN) [Suspect]
     Indication: PRODUCT USED FOR UNKNOWN INDICATION
  11. ACETAMINOPHEN [Suspect]
     Indication: PRODUCT USED FOR UNKNOWN INDICATION
  12. OXAZEPAM [Suspect]
     Indication: PRODUCT USED FOR UNKNOWN INDICATION

REACTIONS (6)
  - TOXICITY TO VARIOUS AGENTS [None]
  - CONTUSION [None]
  - HEPATIC NECROSIS [None]
  - PULMONARY CONGESTION [None]
  - ACCIDENTAL DEATH [None]
  - PULMONARY OEDEMA [None]
